FAERS Safety Report 20214468 (Version 1)
Quarter: 2021Q4

REPORT INFORMATION
  Report Type: Spontaneous
  Country: US (occurrence: US)
  Receive Date: 20211221
  Receipt Date: 20211221
  Transmission Date: 20220304
  Serious: No
  Sender: FDA-Public Use
  Company Number: US-HQ SPECIALTY-US-2021INT000146

PATIENT
  Sex: Female

DRUGS (8)
  1. CISPLATIN [Suspect]
     Active Substance: CISPLATIN
     Indication: Cervix carcinoma stage III
     Dosage: ONCE WEEKLY (TREATMENT 1)
     Route: 065
     Dates: start: 20201005
  2. CISPLATIN [Suspect]
     Active Substance: CISPLATIN
     Dosage: ONCE WEEKLY (TREATMENT 2)
     Route: 065
     Dates: start: 2021
  3. CISPLATIN [Suspect]
     Active Substance: CISPLATIN
     Dosage: ONCE WEEKLY (TREATMENT 3)
     Route: 065
     Dates: start: 2021
  4. CISPLATIN [Suspect]
     Active Substance: CISPLATIN
     Dosage: ONCE WEEKLY (TREATMENT 4)
     Route: 065
     Dates: start: 2021
  5. CISPLATIN [Suspect]
     Active Substance: CISPLATIN
     Dosage: ONCE WEEKLY (TREATMENT 5)
     Route: 065
     Dates: start: 2021
  6. CISPLATIN [Suspect]
     Active Substance: CISPLATIN
     Dosage: ONCE WEEKLY (TREATMENT 6)
     Route: 065
     Dates: start: 2021
  7. CISPLATIN [Suspect]
     Active Substance: CISPLATIN
     Dosage: ONCE WEEKLY (TREATMENT 7)
     Route: 065
     Dates: start: 2021
  8. RADIATION THERAPY [Suspect]
     Active Substance: RADIATION THERAPY
     Indication: Cervix carcinoma stage III
     Dosage: UNK
     Route: 065
     Dates: start: 20201005

REACTIONS (2)
  - Nausea [Unknown]
  - Adverse drug reaction [Unknown]
